FAERS Safety Report 20907963 (Version 2)
Quarter: 2022Q2

REPORT INFORMATION
  Report Type: Spontaneous
  Country: RU (occurrence: RU)
  Receive Date: 20220602
  Receipt Date: 20220615
  Transmission Date: 20220721
  Serious: Yes (Hospitalization, Other)
  Sender: FDA-Public Use
  Company Number: RU-TEVA-2022-RU-2041188

PATIENT
  Age: 12 Year
  Sex: Male

DRUGS (7)
  1. CARBAMAZEPINE [Suspect]
     Active Substance: CARBAMAZEPINE
     Indication: Erythromelalgia
     Dosage: 400 MILLIGRAM DAILY;
     Route: 065
  2. AMITRIPTYLINE [Suspect]
     Active Substance: AMITRIPTYLINE
     Indication: Erythromelalgia
     Route: 065
  3. GABAPENTIN [Suspect]
     Active Substance: GABAPENTIN
     Indication: Erythromelalgia
     Route: 065
  4. PREGABALIN [Suspect]
     Active Substance: PREGABALIN
     Indication: Erythromelalgia
     Route: 065
  5. LIDOCAINE [Suspect]
     Active Substance: LIDOCAINE
     Indication: Erythromelalgia
     Route: 061
  6. SILVER [Suspect]
     Active Substance: SILVER
     Indication: Erythromelalgia
     Route: 065
  7. PREDNISOLONE [Suspect]
     Active Substance: PREDNISOLONE
     Indication: Erythromelalgia
     Route: 065

REACTIONS (2)
  - Toxic skin eruption [Unknown]
  - Drug ineffective [Unknown]
